FAERS Safety Report 19082799 (Version 1)
Quarter: 2021Q2

REPORT INFORMATION
  Report Type: Spontaneous
  Country: US (occurrence: US)
  Receive Date: 20210401
  Receipt Date: 20210401
  Transmission Date: 20210717
  Serious: Yes (Hospitalization)
  Sender: FDA-Public Use
  Company Number: None

PATIENT
  Age: 68 Year
  Sex: Male

DRUGS (20)
  1. LABETALOL [Concomitant]
     Active Substance: LABETALOL\LABETALOL HYDROCHLORIDE
     Dates: start: 20210322
  2. COLCHICINE. [Concomitant]
     Active Substance: COLCHICINE
     Dates: start: 20210331
  3. POLYETH GLYC POW [Concomitant]
     Dates: start: 20210331
  4. ELIQUIS [Concomitant]
     Active Substance: APIXABAN
     Dates: start: 20210222
  5. CLORTHALID [Concomitant]
     Dates: start: 20210331
  6. BRILINTA [Concomitant]
     Active Substance: TICAGRELOR
     Dates: start: 20210322
  7. VI CTOZA [Concomitant]
     Dates: start: 20210217
  8. DOXAZSIN [Concomitant]
     Dates: start: 20210331
  9. AMLODIPINE [Concomitant]
     Active Substance: AMLODIPINE BESYLATE
  10. VASCEPA [Concomitant]
     Active Substance: ICOSAPENT ETHYL
     Dates: start: 20201228
  11. REPATHA [Suspect]
     Active Substance: EVOLOCUMAB
     Indication: PRODUCT USED FOR UNKNOWN INDICATION
     Route: 058
     Dates: start: 20210205
  12. TRIAMCINOLON [Concomitant]
  13. ARIPIPRAZOLE. [Concomitant]
     Active Substance: ARIPIPRAZOLE
     Dates: start: 20201014
  14. HYDRALAZINE [Concomitant]
     Active Substance: HYDRALAZINE HYDROCHLORIDE
     Dates: start: 20210301
  15. HYDROCO/APAP [Concomitant]
     Active Substance: ACETAMINOPHEN\HYDROCODONE
     Dates: start: 20210331
  16. AL BUTEROL [Concomitant]
     Dates: start: 20210112
  17. LABETALOL [Concomitant]
     Active Substance: LABETALOL\LABETALOL HYDROCHLORIDE
     Dates: start: 20210120
  18. ESCITALOPRAM [Concomitant]
     Active Substance: ESCITALOPRAM OXALATE
     Dates: start: 20201101
  19. CLONIDINE. [Concomitant]
     Active Substance: CLONIDINE
     Dates: start: 20210301
  20. GLIMEPRIDE [Concomitant]
     Active Substance: GLIMEPIRIDE
     Dates: start: 20201217

REACTIONS (3)
  - Cerebrovascular accident [None]
  - Therapy interrupted [None]
  - Cerebral artery occlusion [None]

NARRATIVE: CASE EVENT DATE: 20210331
